FAERS Safety Report 7130667 (Version 1)
Quarter: 2020Q3

REPORT INFORMATION
  Report Type: Report from Study
  Country: US (occurrence: US)
  Receive Date: 20090925
  Receipt Date: 20090925
  Transmission Date: 20201104
  Serious: Yes (Other)
  Sender: FDA-Public Use
  Company Number: US-ROCHE-644938

PATIENT
  Age: 86 Year
  Sex: Female
  Weight: 73.5 kg

DRUGS (4)
  1. INSULIN NOS [Concomitant]
     Active Substance: INSULIN NOS
  2. IBANDRONIC ACID. [Suspect]
     Active Substance: IBANDRONIC ACID
     Indication: OSTEOPOROSIS
     Dosage: ^UNSAFE IN PATIENTS WITH CKD^
     Route: 065
     Dates: start: 20090213, end: 20090613
  3. COZAAR [Concomitant]
     Active Substance: LOSARTAN POTASSIUM
  4. PLAVIX [Concomitant]
     Active Substance: CLOPIDOGREL BISULFATE

REACTIONS (2)
  - Renal failure [Unknown]
  - Blood creatinine increased [Unknown]

NARRATIVE: CASE EVENT DATE: 20090709
